FAERS Safety Report 6237162-X (Version None)
Quarter: 2009Q2

REPORT INFORMATION
  Report Type: 
  Country: None (occurrence: None)
  Receive Date: 20090619
  Receipt Date: 20090506
  Transmission Date: 20091009
  Serious: No
  Sender: FDA-Public Use
  Company Number: US-ASTRAZENECA-2009UW11552

PATIENT
  Age: 32710 Day
  Sex: Female
  Weight: 68 kg

DRUGS (3)
  1. SYMBICORT [Suspect]
     Indication: ASTHMA
     Route: 055
     Dates: start: 20090330, end: 20090413
  2. SYNTHROID [Concomitant]
  3. LIPITOR [Concomitant]

REACTIONS (1)
  - MUSCULOSKELETAL PAIN [None]
